FAERS Safety Report 5715775-9 (Version None)
Quarter: 2008Q2

REPORT INFORMATION
  Report Type: 
  Country: None (occurrence: None)
  Receive Date: 20080422
  Receipt Date: 20080407
  Transmission Date: 20081010
  Serious: Yes (Other)
  Sender: FDA-Public Use
  Company Number: 2008S1005808

PATIENT
  Age: 45 Year
  Sex: Male

DRUGS (6)
  1. BISOMERCK PLUS /01166101/ (BISELECT /01166101/) [Suspect]
     Indication: INTENTIONAL OVERDOSE
     Dosage: ; ORAL
     Route: 048
  2. ETHANOL (ETHANOL) [Suspect]
     Indication: INTENTIONAL OVERDOSE
     Dosage: 1.5 L; ORAL
     Route: 048
  3. ATOSIL /00033002/ (PROMETHAZINE HYDROCHLORIDE) [Suspect]
     Indication: INTENTIONAL OVERDOSE
     Dosage: ; ORAL
     Route: 048
  4. DOXYCYCLINE [Suspect]
     Indication: INTENTIONAL OVERDOSE
     Dosage: ; ORAL
     Route: 048
  5. MIRTAZAPINE [Suspect]
     Indication: INTENTIONAL OVERDOSE
     Dosage: ; ORAL
     Route: 048
  6. QUETIAPINE FUMARATE [Suspect]
     Indication: INTENTIONAL OVERDOSE
     Dosage: ; ORAL
     Route: 048

REACTIONS (4)
  - BRADYCARDIA [None]
  - MULTIPLE DRUG OVERDOSE INTENTIONAL [None]
  - SOPOR [None]
  - SUICIDE ATTEMPT [None]
